FAERS Safety Report 8487066-7 (Version None)
Quarter: 2012Q3

REPORT INFORMATION
  Report Type: 
  Country: None (occurrence: None)
  Receive Date: 20120704
  Receipt Date: 20120702
  Transmission Date: 20120928
  Serious: Yes (Life-Threatening, Other)
  Sender: FDA-Public Use
  Company Number: PHHY2011US48769

PATIENT
  Sex: Female

DRUGS (2)
  1. RECLAST [Suspect]
     Route: 042
  2. STEROIDS NOS [Concomitant]

REACTIONS (4)
  - FEELING ABNORMAL [None]
  - TOOTH FRACTURE [None]
  - TOOTH LOSS [None]
  - HYPERSENSITIVITY [None]
